FAERS Safety Report 5318154-1 (Version None)
Quarter: 2007Q1

REPORT INFORMATION
  Report Type: 
  Country: None (occurrence: None)
  Receive Date: 20070201
  Receipt Date: 20060321
  Transmission Date: 20070707
  Serious: Yes (Hospitalization)
  Sender: FDA-Public Use
  Company Number: WAES 0603USA03606

PATIENT
  Age: 65 Year
  Sex: Male

DRUGS (1)
  1. PRIMAXIN [Suspect]
     Indication: POST PROCEDURAL INFECTION
     Dosage: 500 MG/Q6H/IV
     Route: 042

REACTIONS (1)
  - CONVULSION [None]
